FAERS Safety Report 16660438 (Version 1)
Quarter: 2019Q3

REPORT INFORMATION
  Report Type: Spontaneous
  Country: US (occurrence: US)
  Receive Date: 20190801
  Receipt Date: 20190801
  Transmission Date: 20191004
  Serious: Yes (Other)
  Sender: FDA-Public Use
  Company Number: None

PATIENT
  Age: 27 Year
  Sex: Female
  Weight: 77.11 kg

DRUGS (1)
  1. SUBLOCADE [Suspect]
     Active Substance: BUPRENORPHINE
     Indication: SUBSTANCE ABUSE
     Dates: start: 20190422, end: 20190422

REACTIONS (2)
  - Drug screen false positive [None]
  - Drug screen positive [None]

NARRATIVE: CASE EVENT DATE: 20190422
